FAERS Safety Report 5718205-6 (Version None)
Quarter: 2008Q2

REPORT INFORMATION
  Report Type: 
  Country: None (occurrence: None)
  Receive Date: 20080425
  Receipt Date: 20080414
  Transmission Date: 20081010
  Serious: Yes (Death, Hospitalization)
  Sender: FDA-Public Use
  Company Number: DE-ROCHE-522187

PATIENT
  Age: 71 Year
  Sex: Female
  Weight: 49 kg

DRUGS (22)
  1. CAPECITABINE [Suspect]
     Dosage: STRENGTH REPORTED AS 500 MG/150 MG. DOSING REGIMEN: 1250 MG/M2, BID, D1-14, Q21
     Route: 048
     Dates: start: 20070920, end: 20071003
  2. CAPECITABINE [Suspect]
     Route: 048
     Dates: start: 20071011, end: 20071019
  3. FOSAVANCE [Concomitant]
     Indication: OSTEOPOROSIS
     Dosage: FREQUNCY REPORTED AS: Q7.
     Route: 048
     Dates: start: 20060801
  4. FOSAVANCE [Concomitant]
     Dosage: FREQUNCY REPORTED AS: Q7.
     Route: 048
     Dates: start: 20060801
  5. CALCIUM/VITAMIN D [Concomitant]
     Indication: OSTEOPOROSIS
     Route: 048
     Dates: start: 20060801
  6. CALCIUM/VITAMIN D [Concomitant]
     Route: 048
     Dates: start: 20060801
  7. EFFORTIL [Concomitant]
     Indication: CARDIOVASCULAR EVENT PROPHYLAXIS
     Route: 048
     Dates: start: 20070929, end: 20070930
  8. STILNOX [Concomitant]
     Indication: SOMNOLENCE
     Route: 048
     Dates: start: 20071001, end: 20071005
  9. PERFALGAN [Concomitant]
     Indication: PAIN
     Route: 042
     Dates: start: 20070929, end: 20071002
  10. FRAGMIN [Concomitant]
     Indication: THROMBOSIS PROPHYLAXIS
     Route: 058
     Dates: start: 20070927, end: 20071005
  11. XYLOCAIN [Concomitant]
     Dosage: FREQUENCY: ONCE. INDICATION: LOCAL ANESTHESIA FOR PLEURODESIS.
     Route: 003
     Dates: start: 20070928, end: 20070928
  12. XYLOCAIN [Concomitant]
     Dosage: FREQUENCY: ONCE.
     Route: 003
     Dates: start: 20071002, end: 20071002
  13. BEPANTHEN [Concomitant]
     Dosage: INDICATION REPORTED AS NOSE CARE.
     Route: 003
     Dates: start: 20070927, end: 20070927
  14. BEPANTHEN [Concomitant]
     Dosage: INDICATION REPORTED AS NOSE CARE.
     Route: 003
     Dates: start: 20070927, end: 20070927
  15. BEPANTHEN [Concomitant]
     Dosage: INDICATION REPORTED AS NOSE CARE.
     Route: 003
     Dates: start: 20070927, end: 20070927
  16. BEPANTHEN [Concomitant]
     Dosage: INDICATION REPORTED AS NOSE CARE.
     Route: 003
     Dates: start: 20070927, end: 20070927
  17. DIPIDOLOR [Concomitant]
     Indication: PAIN
     Dosage: FREQUENCY: ONCE.
     Route: 042
     Dates: start: 20070927, end: 20070927
  18. CEFUROXIME [Concomitant]
     Route: 042
     Dates: start: 20070929, end: 20070929
  19. DULCOLAX [Concomitant]
     Dosage: DOSE: 1 SUPP
     Route: 054
     Dates: start: 20070930, end: 20070930
  20. DULCOLAX [Concomitant]
     Dosage: DOSE: 1 SUPP
     Route: 054
     Dates: start: 20070930, end: 20070930
  21. DULCOLAX [Concomitant]
     Dosage: DOSE: 1 SUPP
     Route: 054
     Dates: start: 20070930, end: 20070930
  22. CEFUROXIME [Concomitant]
     Indication: ANTI-INFECTIVE THERAPY
     Route: 048
     Dates: start: 20070929, end: 20071005

REACTIONS (6)
  - DEATH [None]
  - DYSPNOEA [None]
  - PLEURAL EFFUSION [None]
  - PNEUMOTHORAX [None]
  - PYREXIA [None]
  - TACHYCARDIA [None]
